FAERS Safety Report 17361243 (Version 1)
Quarter: 2020Q1

REPORT INFORMATION
  Report Type: Spontaneous
  Country: US (occurrence: US)
  Receive Date: 20200203
  Receipt Date: 20200203
  Transmission Date: 20200409
  Serious: No
  Sender: FDA-Public Use
  Company Number: US-JNJFOC-20200141853

PATIENT
  Age: 74 Year
  Sex: Male

DRUGS (1)
  1. ZYTIGA [Suspect]
     Active Substance: ABIRATERONE ACETATE
     Indication: PRODUCT USED FOR UNKNOWN INDICATION
     Route: 048

REACTIONS (6)
  - Hypophagia [Unknown]
  - Feeling cold [Unknown]
  - Pain in extremity [Unknown]
  - Weight decreased [Unknown]
  - Pruritus [Unknown]
  - Irregular breathing [Unknown]

NARRATIVE: CASE EVENT DATE: 20191216
